FAERS Safety Report 9049755 (Version 1)
Quarter: 2013Q1

REPORT INFORMATION
  Report Type: Spontaneous
  Country: US (occurrence: US)
  Receive Date: 20130205
  Receipt Date: 20130205
  Transmission Date: 20140127
  Serious: Yes (Hospitalization)
  Sender: FDA-Public Use
  Company Number: US-BAYER-2013-015057

PATIENT
  Age: 28 Year
  Sex: Female
  Weight: 111 kg

DRUGS (3)
  1. YASMIN [Suspect]
     Indication: CONTRACEPTION
  2. NAPROXEN [Concomitant]
     Dosage: 500 MG, 1 TABLET BID
     Route: 048
  3. TRIAMCINOLONE [TRIAMCINOLONE] [Concomitant]
     Dosage: 0.1 %, APPLY 2 TIMES DAILY TO AFFECTED AREA.
     Route: 061

REACTIONS (1)
  - Pulmonary embolism [None]
